FAERS Safety Report 6677682-7 (Version None)
Quarter: 2010Q2

REPORT INFORMATION
  Report Type: 
  Country: None (occurrence: None)
  Receive Date: 20100412
  Receipt Date: 20100311
  Transmission Date: 20101027
  Serious: No
  Sender: FDA-Public Use
  Company Number: IT-ALEXION-A201000283

PATIENT

DRUGS (3)
  1. SOLIRIS [Suspect]
     Indication: PAROXYSMAL NOCTURNAL HAEMOGLOBINURIA
     Dosage: 600 MG, UNK
     Route: 042
     Dates: start: 20091216
  2. SOLIRIS [Suspect]
     Dosage: 900 MG, UNK
     Route: 042
  3. EPOGEN [Concomitant]
     Dosage: UNK
     Dates: start: 20091230

REACTIONS (1)
  - DRUG INEFFECTIVE [None]
